FAERS Safety Report 9353260 (Version 1)
Quarter: 2013Q2

REPORT INFORMATION
  Report Type: Spontaneous
  Country: US (occurrence: None)
  Receive Date: 20130617
  Receipt Date: 20130617
  Transmission Date: 20140414
  Serious: Yes (Life-Threatening, Hospitalization)
  Sender: FDA-Public Use
  Company Number: None

PATIENT
  Age: 24 Year
  Sex: Male
  Weight: 92.7 kg

DRUGS (2)
  1. HALOPERIDOL [Suspect]
     Dosage: 10 MG  PRN  SQ
     Route: 058
     Dates: start: 20120613, end: 20130323
  2. HALOPERIDOL [Suspect]

REACTIONS (3)
  - Sinus tachycardia [None]
  - Leukocytosis [None]
  - Neuroleptic malignant syndrome [None]
